FAERS Safety Report 21579846 (Version 1)
Quarter: 2022Q4

REPORT INFORMATION
  Report Type: Spontaneous
  Country: DE (occurrence: DE)
  Receive Date: 20221110
  Receipt Date: 20221110
  Transmission Date: 20230113
  Serious: Yes (Hospitalization)
  Sender: FDA-Public Use
  Company Number: DE-ADRED-07624-02

PATIENT
  Age: 78 Year
  Sex: Female

DRUGS (4)
  1. OXYCODONE HYDROCHLORIDE [Suspect]
     Active Substance: OXYCODONE HYDROCHLORIDE
     Indication: Product used for unknown indication
     Dosage: IF REQUIRED
     Route: 048
  2. DICLOFENAC [Suspect]
     Active Substance: DICLOFENAC
     Indication: Product used for unknown indication
     Dosage: 15 MG, LAST SEVERAL TIMES DAILY IF REQUIRED
     Route: 048
  3. OMEPRAZOLE [Concomitant]
     Active Substance: OMEPRAZOLE
     Indication: Product used for unknown indication
     Dosage: 20 MG, IF REQUIRED TO TAKE DICLOFENAC
  4. CANDESARTAN [Concomitant]
     Active Substance: CANDESARTAN
     Indication: Product used for unknown indication
     Dosage: 32 MG, 0.5-0-0-0

REACTIONS (9)
  - Abdominal pain upper [Unknown]
  - Gastritis [Unknown]
  - Dizziness [Unknown]
  - Abdominal pain lower [Unknown]
  - Somnolence [Unknown]
  - Weight decreased [Unknown]
  - Vomiting [Unknown]
  - Diarrhoea [Unknown]
  - Gastroenteritis [Unknown]
